FAERS Safety Report 11984563 (Version 1)
Quarter: 2016Q1

REPORT INFORMATION
  Report Type: Spontaneous
  Country: US (occurrence: US)
  Receive Date: 20160201
  Receipt Date: 20160201
  Transmission Date: 20160526
  Serious: No
  Sender: FDA-Public Use
  Company Number: US-GLAXOSMITHKLINE-US2016011282

PATIENT
  Sex: Female

DRUGS (2)
  1. VENTOLIN HFA [Suspect]
     Active Substance: ALBUTEROL SULFATE
     Indication: ASTHMA
     Dosage: 1 PUFF(S), UNK
     Route: 055
     Dates: start: 2014
  2. VENTOLIN HFA [Suspect]
     Active Substance: ALBUTEROL SULFATE
     Dosage: UNK

REACTIONS (5)
  - Therapeutic response decreased [Not Recovered/Not Resolved]
  - Nervousness [Unknown]
  - Device use error [Not Recovered/Not Resolved]
  - Feeling jittery [Unknown]
  - Inhalation therapy [Unknown]
